FAERS Safety Report 4788944-2 (Version None)
Quarter: 2005Q4

REPORT INFORMATION
  Report Type: 
  Country: None (occurrence: None)
  Receive Date: 20051004
  Receipt Date: 20050921
  Transmission Date: 20060501
  Serious: Yes (Other)
  Sender: FDA-Public Use
  Company Number: 2005089289

PATIENT
  Sex: Female

DRUGS (2)
  1. DETROL LA [Suspect]
     Indication: ILL-DEFINED DISORDER
  2. HYDROCORTISONE [Concomitant]

REACTIONS (5)
  - DRUG INEFFECTIVE [None]
  - ENURESIS [None]
  - PAIN [None]
  - PRURITUS [None]
  - SURGERY [None]
